FAERS Safety Report 4917044-3 (Version None)
Quarter: 2006Q1

REPORT INFORMATION
  Report Type: 
  Country: None (occurrence: None)
  Receive Date: 20060214
  Receipt Date: 20060201
  Transmission Date: 20060701
  Serious: Yes (Hospitalization, Other)
  Sender: FDA-Public Use
  Company Number: HQWYE640803FEB06

PATIENT
  Age: 23 Month
  Sex: Female

DRUGS (8)
  1. MYLOTARG [Suspect]
     Dosage: 6 MG/M^2 1X PER 1 DAY INTRAVENOUS DRIP
     Route: 041
     Dates: start: 20051124, end: 20051124
  2. MYLOTARG [Suspect]
     Dosage: 6 MG/M^2 1X PER 1 DAY INTRAVENOUS DRIP
     Route: 041
     Dates: start: 20051208, end: 20051208
  3. FUNGIZONE [Concomitant]
  4. POLYMYXIN B SULFATE (POLYMYXIN B SULFATE) [Concomitant]
  5. ALLOID (SODIUM ALGINATE) [Concomitant]
  6. BACTRIM [Concomitant]
  7. BIOFERMIN R (STREPTOCOCCUS FAECALIS) [Concomitant]
  8. TIENAM (CILASTATIN/IMIPENEM) [Concomitant]

REACTIONS (9)
  - ABDOMINAL DISTENSION [None]
  - BLOOD LACTATE DEHYDROGENASE INCREASED [None]
  - BLOOD POTASSIUM DECREASED [None]
  - BONE PAIN [None]
  - CHILLS [None]
  - DIARRHOEA [None]
  - PYREXIA [None]
  - THIRST [None]
  - VOMITING [None]
